FAERS Safety Report 17373406 (Version 1)
Quarter: 2020Q1

REPORT INFORMATION
  Report Type: Spontaneous
  Country: US (occurrence: US)
  Receive Date: 20200205
  Receipt Date: 20200205
  Transmission Date: 20200409
  Serious: Yes (Death)
  Sender: FDA-Public Use
  Company Number: US-PORTOLA PHARMACEUTICALS, INC.-2019US000023

PATIENT

DRUGS (2)
  1. ANDEXXA [Suspect]
     Active Substance: ANDEXANET ALFA
     Indication: PROCOAGULANT THERAPY
     Dosage: UNK
     Route: 040
     Dates: start: 201904, end: 201904
  2. ANDEXXA [Suspect]
     Active Substance: ANDEXANET ALFA
     Dosage: UNK
     Route: 042
     Dates: start: 201904, end: 201904

REACTIONS (1)
  - Death [Fatal]
